FAERS Safety Report 19201478 (Version 1)
Quarter: 2021Q2

REPORT INFORMATION
  Report Type: Spontaneous
  Country: US (occurrence: US)
  Receive Date: 20210430
  Receipt Date: 20210430
  Transmission Date: 20210717
  Serious: No
  Sender: FDA-Public Use
  Company Number: US-CELGENEUS-USA-20210405335

PATIENT
  Age: 77 Year
  Sex: Female

DRUGS (4)
  1. REVLIMID [Suspect]
     Active Substance: LENALIDOMIDE
     Indication: AMYLOIDOSIS
     Dosage: 15 MILLIGRAM
     Route: 048
     Dates: start: 20210329, end: 20210418
  2. GABAPENTIN. [Concomitant]
     Active Substance: GABAPENTIN
     Indication: MUSCLE SPASMS
  3. CYCLOPHOSPHAMIDE. [Concomitant]
     Active Substance: CYCLOPHOSPHAMIDE
     Indication: PRIMARY AMYLOIDOSIS
     Dosage: 50 MILLIGRAM
     Route: 048
     Dates: start: 20210331
  4. GABAPENTIN. [Concomitant]
     Active Substance: GABAPENTIN
     Indication: TREMOR
     Route: 065

REACTIONS (5)
  - Confusional state [Not Recovered/Not Resolved]
  - Muscle spasms [Not Recovered/Not Resolved]
  - Haemoptysis [Not Recovered/Not Resolved]
  - Tremor [Not Recovered/Not Resolved]
  - Anxiety [Not Recovered/Not Resolved]

NARRATIVE: CASE EVENT DATE: 20210414
